FAERS Safety Report 22340302 (Version 8)
Quarter: 2024Q1

REPORT INFORMATION
  Report Type: Report from Study
  Country: DE (occurrence: DE)
  Receive Date: 20230518
  Receipt Date: 20240313
  Transmission Date: 20240410
  Serious: Yes (Life-Threatening, Other)
  Sender: FDA-Public Use
  Company Number: DE-IPSEN Group, Research and Development-2022-34331

PATIENT

DRUGS (17)
  1. CABOZANTINIB [Suspect]
     Active Substance: CABOZANTINIB
     Indication: Renal cell carcinoma
     Dosage: 40 MG, QD
     Route: 048
     Dates: start: 20221206, end: 20221209
  2. CABOZANTINIB [Suspect]
     Active Substance: CABOZANTINIB
     Dosage: 40 MG, QD
     Route: 048
     Dates: start: 20230426, end: 20230511
  3. CABOZANTINIB [Suspect]
     Active Substance: CABOZANTINIB
     Dosage: 20 MG, QD
     Route: 048
     Dates: start: 20230512
  4. NIVOLUMAB [Suspect]
     Active Substance: NIVOLUMAB
     Indication: Renal cell carcinoma
     Dosage: 240 MG
     Route: 042
     Dates: start: 20221122
  5. NIVOLUMAB [Suspect]
     Active Substance: NIVOLUMAB
     Dosage: 240 MG
     Route: 042
     Dates: start: 20221206
  6. NIVOLUMAB [Suspect]
     Active Substance: NIVOLUMAB
     Dosage: 240 MG
     Route: 042
     Dates: start: 20221220
  7. NIVOLUMAB [Suspect]
     Active Substance: NIVOLUMAB
     Dosage: 240 MG
     Route: 042
     Dates: start: 20230112
  8. NIVOLUMAB [Suspect]
     Active Substance: NIVOLUMAB
     Dosage: 240 MG
     Route: 042
     Dates: start: 20230126
  9. NIVOLUMAB [Suspect]
     Active Substance: NIVOLUMAB
     Dosage: 240 MG
     Route: 042
     Dates: start: 20230209
  10. NIVOLUMAB [Suspect]
     Active Substance: NIVOLUMAB
     Dosage: 240 MG
     Route: 042
     Dates: start: 20230223
  11. NIVOLUMAB [Suspect]
     Active Substance: NIVOLUMAB
     Dosage: 240 MG
     Route: 042
     Dates: start: 20230309
  12. NIVOLUMAB [Suspect]
     Active Substance: NIVOLUMAB
     Dosage: 240 MG
     Route: 042
     Dates: start: 20230323
  13. NIVOLUMAB [Suspect]
     Active Substance: NIVOLUMAB
     Dosage: 240 MG
     Route: 042
     Dates: start: 20230413
  14. ELACUTAN [Concomitant]
     Indication: Dry skin
     Dosage: OTHER ROUTE
     Route: 050
     Dates: start: 20230309
  15. PANTOPRAZOLE SODIUM [Concomitant]
     Active Substance: PANTOPRAZOLE SODIUM
     Indication: Antacid therapy
     Dosage: PRN - AS NEEDED
     Route: 048
  16. PANTOPRAZOLE SODIUM [Concomitant]
     Active Substance: PANTOPRAZOLE SODIUM
     Dosage: PRN - AS NEEDED
     Route: 048
  17. PANTOPRAZOLE SODIUM [Concomitant]
     Active Substance: PANTOPRAZOLE SODIUM
     Dosage: PRN - AS NEEDED

REACTIONS (19)
  - Malnutrition [Unknown]
  - Cachexia [Unknown]
  - Gastric stenosis [Unknown]
  - Malignant neoplasm progression [Unknown]
  - Dry mouth [Unknown]
  - Back pain [Recovered/Resolved]
  - Hypertension [Recovered/Resolved]
  - Decreased appetite [Unknown]
  - Diarrhoea [Unknown]
  - Gastrointestinal disorder [Unknown]
  - Depression [Unknown]
  - Pruritus [Unknown]
  - Abdominal pain upper [Unknown]
  - Dyspepsia [Recovering/Resolving]
  - Nausea [Unknown]
  - Vomiting [Unknown]
  - Arthralgia [Unknown]
  - Arthralgia [Recovered/Resolved with Sequelae]
  - Vomiting [Unknown]

NARRATIVE: CASE EVENT DATE: 20221201
